FAERS Safety Report 22328248 (Version 1)
Quarter: 2023Q2

REPORT INFORMATION
  Report Type: Report from Study
  Country: US (occurrence: US)
  Receive Date: 20230517
  Receipt Date: 20230517
  Transmission Date: 20230721
  Serious: Yes (Other)
  Sender: FDA-Public Use
  Company Number: US-002147023-NVSC2023US108180

PATIENT
  Sex: Female

DRUGS (3)
  1. OXALIPLATIN [Suspect]
     Active Substance: OXALIPLATIN
     Indication: Ductal adenocarcinoma of pancreas
     Dosage: UNK, Q2W ( FOR FIRST 4 WEEKS OF 6-WEEK CYCLE)
     Route: 065
     Dates: start: 202209, end: 202303
  2. FLUOROURACIL [Suspect]
     Active Substance: FLUOROURACIL
     Indication: Ductal adenocarcinoma of pancreas
     Dosage: UNK UNK, QW (FOR FIRST 4 WEEKS OF 6-WEEK CYCLE)
     Route: 065
     Dates: start: 202209, end: 202303
  3. LEUCOVORIN [Suspect]
     Active Substance: LEUCOVORIN
     Indication: Product used for unknown indication
     Dosage: UNK, QW (FOR FIRST 4 WEEKS OF 6-WEEK CYCLE)
     Route: 065

REACTIONS (3)
  - Ductal adenocarcinoma of pancreas [Unknown]
  - Malignant neoplasm progression [Unknown]
  - Off label use [Unknown]
